FAERS Safety Report 23831211 (Version 3)
Quarter: 2024Q4

REPORT INFORMATION
  Report Type: Report from Study
  Country: US (occurrence: US)
  Receive Date: 20240508
  Receipt Date: 20241217
  Transmission Date: 20250114
  Serious: Yes (Other)
  Sender: PFIZER
  Company Number: US-PFIZER INC-PV202400059396

PATIENT
  Age: 76 Year
  Sex: Male
  Weight: 103.41 kg

DRUGS (3)
  1. VYNDAMAX [Suspect]
     Active Substance: TAFAMIDIS
     Indication: Cardiac amyloidosis
     Dosage: 61 MG, 1X/DAY
     Route: 048
     Dates: start: 20230902
  2. VYNDAMAX [Suspect]
     Active Substance: TAFAMIDIS
     Dosage: 61 MG, 1X/DAY
     Route: 048
     Dates: end: 20241022
  3. MOUNJARO [Suspect]
     Active Substance: TIRZEPATIDE
     Indication: Diabetes mellitus
     Dosage: HOLD ON MOUNJARO FOR 6-8 WEEKS/RESUMED AT A LOWER DOSE

REACTIONS (12)
  - Abdominal pain [Recovered/Resolved]
  - Vomiting [Recovered/Resolved]
  - Dyspepsia [Recovered/Resolved]
  - Flatulence [Recovered/Resolved]
  - Diarrhoea [Recovered/Resolved]
  - Endodontic procedure [Recovered/Resolved]
  - Ascites [Recovered/Resolved]
  - Gastrointestinal disorder [Recovered/Resolved]
  - Jaw disorder [Recovered/Resolved]
  - Muscle injury [Recovered/Resolved]
  - Diarrhoea infectious [Recovered/Resolved]
  - Inappropriate schedule of product administration [Unknown]
